FAERS Safety Report 24387470 (Version 2)
Quarter: 2024Q4

REPORT INFORMATION
  Report Type: Report from Study
  Country: NL (occurrence: NL)
  Receive Date: 20241002
  Receipt Date: 20241016
  Transmission Date: 20250115
  Serious: Yes (Hospitalization)
  Sender: MYLAN
  Company Number: NL-MYLANLABS-2024M1083642

PATIENT
  Age: 53 Year
  Sex: Female

DRUGS (1)
  1. GLATIRAMER ACETATE [Suspect]
     Active Substance: GLATIRAMER ACETATE
     Indication: Relapsing multiple sclerosis
     Dosage: 40 MILLIGRAM/MILLILITRE, 3XW, (THREE TIMESPER WEEK)
     Route: 058
     Dates: start: 202002

REACTIONS (2)
  - Knee operation [Recovering/Resolving]
  - Injection site nodule [Unknown]

NARRATIVE: CASE EVENT DATE: 20240520
